FAERS Safety Report 9200757 (Version 1)
Quarter: 2013Q1

REPORT INFORMATION
  Report Type: Spontaneous
  Country: NL (occurrence: None)
  Receive Date: 20130327
  Receipt Date: 20130327
  Transmission Date: 20140127
  Serious: Yes (Other)
  Sender: FDA-Public Use
  Company Number: 2013-04836

PATIENT
  Age: 7 Year
  Sex: Male

DRUGS (4)
  1. SALBUTAMOL [Suspect]
     Indication: DYSPNOEA
  2. SALBUTAMOL [Suspect]
     Indication: WHEEZING
  3. FLUTICASONE [Suspect]
     Indication: DYSPNOEA
     Dosage: 2 DD
     Route: 055
  4. FLUTICASONE [Suspect]
     Indication: WHEEZING
     Dosage: 2 DD
     Route: 055

REACTIONS (3)
  - Abnormal behaviour [None]
  - Educational problem [None]
  - Social problem [None]
